FAERS Safety Report 10644407 (Version 1)
Quarter: 2014Q4

REPORT INFORMATION
  Report Type: Spontaneous
  Country: CH (occurrence: CH)
  Receive Date: 20141210
  Receipt Date: 20141210
  Transmission Date: 20150529
  Serious: Yes (Hospitalization, Other)
  Sender: FDA-Public Use
  Company Number: CH-GLAXOSMITHKLINE-CH2014030338

PATIENT

DRUGS (3)
  1. DEPAKINE CHRONO [Suspect]
     Active Substance: VALPROATE SODIUM
     Indication: EPILEPSY
     Dosage: DEPAKINE CHRONO 500 MG 1-0-1.5
     Route: 048
     Dates: start: 1984, end: 20141106
  2. CEFTRIAXON [Concomitant]
     Active Substance: CEFTRIAXONE
     Route: 042
     Dates: start: 20141101, end: 20141105
  3. LAMICTAL [Suspect]
     Active Substance: LAMOTRIGINE
     Indication: EPILEPSY
     Dosage: LAMICTAL 50 MG TABL 2-0-1
     Route: 048
     Dates: start: 1984, end: 20141106

REACTIONS (4)
  - Pleural effusion [Recovering/Resolving]
  - Polyserositis [Recovering/Resolving]
  - Pericardial effusion [Recovering/Resolving]
  - Pericarditis [Recovering/Resolving]

NARRATIVE: CASE EVENT DATE: 20141001
